FAERS Safety Report 5719208-8 (Version None)
Quarter: 2008Q2

REPORT INFORMATION
  Report Type: 
  Country: None (occurrence: None)
  Receive Date: 20080428
  Receipt Date: 20080415
  Transmission Date: 20081010
  Serious: Yes (Other)
  Sender: FDA-Public Use
  Company Number: US-ELI_LILLY_AND_COMPANY-US200804003922

PATIENT
  Sex: Female

DRUGS (3)
  1. ZYPREXA [Suspect]
     Dosage: 40 MG, UNK
  2. LITHIUM CARBONATE [Concomitant]
     Dosage: 1050 MG, DAILY (1/D)
  3. SEROQUEL [Concomitant]
     Dosage: 600 MG, DAILY (1/D)

REACTIONS (2)
  - ELECTROCARDIOGRAM QT PROLONGED [None]
  - OVERDOSE [None]
